FAERS Safety Report 15587360 (Version 2)
Quarter: 2019Q1

REPORT INFORMATION
  Report Type: Report from Study
  Country: US (occurrence: US)
  Receive Date: 20181105
  Receipt Date: 20190117
  Transmission Date: 20190417
  Serious: Yes (Other)
  Sender: FDA-Public Use
  Company Number: US-JNJFOC-20181102396

PATIENT
  Age: 72 Year
  Sex: Male

DRUGS (20)
  1. BYSTOLIC [Concomitant]
     Active Substance: NEBIVOLOL HYDROCHLORIDE
  2. FUROSEMIDE. [Concomitant]
     Active Substance: FUROSEMIDE
  3. PREDNISONE. [Concomitant]
     Active Substance: PREDNISONE
  4. VITAMIN C [Concomitant]
     Active Substance: ASCORBIC ACID
  5. PRAVASTATIN SODIUM. [Concomitant]
     Active Substance: PRAVASTATIN SODIUM
  6. FENTANYL. [Concomitant]
     Active Substance: FENTANYL
  7. SALMO SALAR OIL [Concomitant]
     Active Substance: ATLANTIC SALMON OIL
  8. VALACYCLOVIR [Concomitant]
     Active Substance: VALACYCLOVIR HYDROCHLORIDE
  9. PRAVASTATIN. [Concomitant]
     Active Substance: PRAVASTATIN
  10. IMBRUVICA [Suspect]
     Active Substance: IBRUTINIB
     Indication: CHRONIC LYMPHOCYTIC LEUKAEMIA
     Route: 048
     Dates: start: 20180827, end: 20180912
  11. PRADAXA [Concomitant]
     Active Substance: DABIGATRAN ETEXILATE MESYLATE
  12. FLUOCINOLONE [Concomitant]
     Active Substance: FLUOCINOLONE
  13. DOXAZOSIN [Concomitant]
     Active Substance: DOXAZOSIN\DOXAZOSIN MESYLATE
  14. OXYCODONE [Concomitant]
     Active Substance: OXYCODONE
  15. ASPIRIN. [Concomitant]
     Active Substance: ASPIRIN
  16. VITAMIN D3 [Concomitant]
     Active Substance: CHOLECALCIFEROL
  17. ULORIC [Concomitant]
     Active Substance: FEBUXOSTAT
  18. METOPROLOL. [Concomitant]
     Active Substance: METOPROLOL
  19. OXYCODONE AND ASPIRIN [Concomitant]
     Active Substance: ASPIRIN\OXYCODONE HYDROCHLORIDE
  20. IMBRUVICA [Suspect]
     Active Substance: IBRUTINIB
     Indication: CHRONIC LYMPHOCYTIC LEUKAEMIA
     Route: 048
     Dates: start: 20180913

REACTIONS (3)
  - Fatigue [Recovering/Resolving]
  - Anaemia [Not Recovered/Not Resolved]
  - Skin exfoliation [Not Recovered/Not Resolved]

NARRATIVE: CASE EVENT DATE: 20181008
